FAERS Safety Report 9110399 (Version 1)
Quarter: 2013Q1

REPORT INFORMATION
  Report Type: Spontaneous
  Country: US (occurrence: US)
  Receive Date: 20130219
  Receipt Date: 20130219
  Transmission Date: 20140127
  Serious: No
  Sender: FDA-Public Use
  Company Number: US-BRISTOL-MYERS SQUIBB COMPANY-16583544

PATIENT
  Age: 63 Year
  Sex: Female
  Weight: 136.96 kg

DRUGS (1)
  1. ORENCIA [Suspect]
     Indication: RHEUMATOID ARTHRITIS
     Dosage: LAST INF: 24APR2012?NO OF INF:6
     Route: 042
     Dates: start: 20120110

REACTIONS (1)
  - Cough [Not Recovered/Not Resolved]
